FAERS Safety Report 5195585-4 (Version None)
Quarter: 2007Q1

REPORT INFORMATION
  Report Type: 
  Country: None (occurrence: None)
  Receive Date: 20070102
  Receipt Date: 20061221
  Transmission Date: 20070707
  Serious: Yes (Other)
  Sender: FDA-Public Use
  Company Number: PHHO2006BE16045

PATIENT
  Age: 69 Year
  Sex: Female
  Weight: 69 kg

DRUGS (4)
  1. ZOLEDRONIC ACID [Suspect]
     Dosage: 3.5 MG,
     Route: 042
     Dates: start: 20040919
  2. CACIT D3 [Concomitant]
  3. FEMARA [Suspect]
     Indication: BREAST CANCER
     Dosage: 2.5 MG, QD
     Route: 048
     Dates: start: 20040919
  4. PREMARIN [Concomitant]

REACTIONS (10)
  - ARTIFICIAL CROWN PROCEDURE [None]
  - DENTAL CARIES [None]
  - DENTAL EXAMINATION ABNORMAL [None]
  - GINGIVITIS [None]
  - HAEMORRHAGE [None]
  - OSTEONECROSIS [None]
  - RESORPTION BONE INCREASED [None]
  - SENSITIVITY OF TEETH [None]
  - TOOTH EXTRACTION [None]
  - TOOTHACHE [None]
